FAERS Safety Report 16210104 (Version 3)
Quarter: 2023Q1

REPORT INFORMATION
  Report Type: Report from Study
  Country: US (occurrence: US)
  Receive Date: 20190417
  Receipt Date: 20230207
  Transmission Date: 20230418
  Serious: Yes (Hospitalization)
  Sender: FDA-Public Use
  Company Number: US-SHIRE-US201912504

PATIENT
  Sex: Female

DRUGS (4)
  1. TEDUGLUTIDE [Suspect]
     Active Substance: TEDUGLUTIDE
     Indication: Short-bowel syndrome
     Dosage: UNK UNK, QD
     Route: 050
     Dates: start: 20180717
  2. TEDUGLUTIDE [Suspect]
     Active Substance: TEDUGLUTIDE
     Indication: Short-bowel syndrome
     Dosage: UNK UNK, QD
     Route: 050
     Dates: start: 20180717
  3. TEDUGLUTIDE [Suspect]
     Active Substance: TEDUGLUTIDE
     Indication: Short-bowel syndrome
     Dosage: UNK UNK, QD
     Route: 050
     Dates: start: 20180717
  4. TEDUGLUTIDE [Suspect]
     Active Substance: TEDUGLUTIDE
     Indication: Short-bowel syndrome
     Dosage: UNK UNK, QD
     Route: 050
     Dates: start: 20180717

REACTIONS (3)
  - Hospitalisation [Unknown]
  - Weight increased [Recovering/Resolving]
  - Insurance issue [Unknown]
